FAERS Safety Report 6965063-8 (Version None)
Quarter: 2010Q3

REPORT INFORMATION
  Report Type: 
  Country: None (occurrence: None)
  Receive Date: 20100903
  Receipt Date: 20100824
  Transmission Date: 20110219
  Serious: Yes (Hospitalization)
  Sender: FDA-Public Use
  Company Number: FR-ELI_LILLY_AND_COMPANY-FR201007002201

PATIENT
  Sex: Male
  Weight: 98 kg

DRUGS (2)
  1. SOMATROPIN [Suspect]
     Indication: PITUITARY TUMOUR BENIGN
     Dosage: 0.6 MG, DAILY (1/D)
     Route: 058
     Dates: start: 20050501, end: 20080101
  2. UMATROPE [Concomitant]

REACTIONS (1)
  - PITUITARY TUMOUR BENIGN [None]
